FAERS Safety Report 19498023 (Version 1)
Quarter: 2021Q3

REPORT INFORMATION
  Report Type: Spontaneous
  Country: BR (occurrence: BR)
  Receive Date: 20210706
  Receipt Date: 20210706
  Transmission Date: 20211014
  Serious: Yes (Other)
  Sender: FDA-Public Use
  Company Number: BR-009507513-2106BRA007908

PATIENT
  Age: 76 Year
  Sex: Male
  Weight: 84 kg

DRUGS (2)
  1. FORXIGA [Concomitant]
     Active Substance: DAPAGLIFLOZIN
     Indication: DIABETES MELLITUS
  2. JANUMET XR [Suspect]
     Active Substance: METFORMIN HYDROCHLORIDE\SITAGLIPTIN PHOSPHATE
     Indication: DIABETES MELLITUS
     Dosage: 1 TABLET IN THE MORNING AND 1 TABLET AT NIGHT
     Route: 048
     Dates: start: 2017

REACTIONS (7)
  - Dysphagia [Not Recovered/Not Resolved]
  - Product use issue [Unknown]
  - Product use complaint [Unknown]
  - Hypertension [Unknown]
  - Hypoacusis [Unknown]
  - Polyp [Unknown]
  - Choking [Not Recovered/Not Resolved]

NARRATIVE: CASE EVENT DATE: 2017
